FAERS Safety Report 5099858-5 (Version None)
Quarter: 2006Q3

REPORT INFORMATION
  Report Type: 
  Country: None (occurrence: None)
  Receive Date: 20060908
  Receipt Date: 20060719
  Transmission Date: 20061208
  Serious: Yes (Hospitalization, Other)
  Sender: FDA-Public Use
  Company Number: US-AMGEN-KDL186859

PATIENT
  Sex: Male

DRUGS (1)
  1. ENBREL [Suspect]
     Indication: PUSTULAR PSORIASIS
     Route: 058
     Dates: start: 20060214, end: 20060425

REACTIONS (6)
  - BETA HAEMOLYTIC STREPTOCOCCAL INFECTION [None]
  - CANDIDIASIS [None]
  - CELLULITIS [None]
  - CONDITION AGGRAVATED [None]
  - PUSTULAR PSORIASIS [None]
  - TINEA PEDIS [None]
